FAERS Safety Report 16358681 (Version 2)
Quarter: 2019Q2

REPORT INFORMATION
  Report Type: Spontaneous
  Country: JP (occurrence: JP)
  Receive Date: 20190527
  Receipt Date: 20190619
  Transmission Date: 20190711
  Serious: Yes (Hospitalization)
  Sender: FDA-Public Use
  Company Number: JP-ELI_LILLY_AND_COMPANY-JP201905010546

PATIENT
  Age: 69 Year
  Sex: Female

DRUGS (3)
  1. VERZENIO [Suspect]
     Active Substance: ABEMACICLIB
     Indication: BREAST CANCER
     Dosage: 150 MG, BID
     Route: 048
     Dates: start: 20190228, end: 20190425
  2. FULVESTRANT. [Concomitant]
     Active Substance: FULVESTRANT
     Indication: BREAST CANCER
     Dosage: UNK
     Route: 030
     Dates: start: 20190228, end: 20190425
  3. CANDESARTAN. [Concomitant]
     Active Substance: CANDESARTAN
     Indication: HYPERTENSION
     Dosage: 4 MG, DAILY
     Route: 048
     Dates: start: 20181206

REACTIONS (3)
  - Cerebral haemorrhage [Unknown]
  - Movement disorder [Unknown]
  - Speech disorder [Unknown]
